FAERS Safety Report 14979017 (Version 1)
Quarter: 2018Q2

REPORT INFORMATION
  Report Type: Spontaneous
  Country: JP (occurrence: JP)
  Receive Date: 20180606
  Receipt Date: 20180606
  Transmission Date: 20180711
  Serious: Yes (Other)
  Sender: FDA-Public Use
  Company Number: JP-009507513-1805JPN003026J

PATIENT
  Age: 81 Year
  Sex: Female

DRUGS (1)
  1. ZETIA [Suspect]
     Active Substance: EZETIMIBE
     Dosage: UNK
     Route: 048
     Dates: start: 201803, end: 201805

REACTIONS (2)
  - Musculoskeletal pain [Unknown]
  - Melaena [Unknown]

NARRATIVE: CASE EVENT DATE: 2018
